FAERS Safety Report 24278038 (Version 1)
Quarter: 2024Q3

REPORT INFORMATION
  Report Type: Spontaneous
  Country: DE (occurrence: DE)
  Receive Date: 20240903
  Receipt Date: 20240903
  Transmission Date: 20241017
  Serious: Yes (Life-Threatening, Hospitalization, Other)
  Sender: BAYER
  Company Number: None

PATIENT
  Age: 30 Year
  Sex: Male
  Weight: 82.4 kg

DRUGS (30)
  1. CIPROFLOXACIN HYDROCHLORIDE [Suspect]
     Active Substance: CIPROFLOXACIN HYDROCHLORIDE
     Dosage: 1-1-1
     Route: 042
     Dates: start: 20240628, end: 20240702
  2. CEFEPIME [Suspect]
     Active Substance: CEFEPIME HYDROCHLORIDE
     Dosage: 1 DF, Q8HR
     Route: 042
     Dates: start: 20240628, end: 20240702
  3. PREGABALIN [Concomitant]
     Active Substance: PREGABALIN
     Dosage: TITRATION REGIMEN: XY50 MG
  4. APIXABAN [Concomitant]
     Active Substance: APIXABAN
  5. CHOLECALCIFEROL [Concomitant]
     Active Substance: CHOLECALCIFEROL
  6. DOXAZOSIN [Concomitant]
     Active Substance: DOXAZOSIN MESYLATE
  7. Amlodipin Hexal [Concomitant]
  8. PANTOPRAZOLE SODIUM [Concomitant]
     Active Substance: PANTOPRAZOLE SODIUM
  9. HYDROMORPHON HEXAL [Concomitant]
     Indication: Pain
     Dosage: MAX. 4/DAY FOR PAIN
  10. Lanthan Mylan [Concomitant]
  11. PREDNISOLONE [Concomitant]
     Active Substance: PREDNISOLONE
     Dosage: 2.5MG
  12. CLOPIDOGREL [Concomitant]
     Active Substance: CLOPIDOGREL BISULFATE
  13. MEROPENEM [Concomitant]
     Active Substance: MEROPENEM
     Route: 042
  14. HYDROMORPHONE [Concomitant]
     Active Substance: HYDROMORPHONE
  15. MOXONIDINE [Concomitant]
     Active Substance: MOXONIDINE
  16. EZETIMIB MYLAN [Concomitant]
  17. ATORVASTATIN [Concomitant]
     Active Substance: ATORVASTATIN
  18. SODIUM PICOSULFATE [Concomitant]
     Active Substance: SODIUM PICOSULFATE
  19. LEVOTHYROXINE SODIUM [Concomitant]
     Active Substance: LEVOTHYROXINE SODIUM
  20. BISOPROLOL FUMARATE [Concomitant]
     Active Substance: BISOPROLOL FUMARATE
  21. CANDESARTAN CILEXETIL [Concomitant]
     Active Substance: CANDESARTAN CILEXETIL
  22. ACETAMINOPHEN [Concomitant]
     Active Substance: ACETAMINOPHEN
  23. COTRIMOXAZOLE [Concomitant]
     Active Substance: SULFAMETHOXAZOLE\TRIMETHOPRIM
  24. SEVELAMER CARBONATE [Concomitant]
     Active Substance: SEVELAMER CARBONATE
  25. HEPARIN [Concomitant]
     Active Substance: HEPARIN SODIUM
     Route: 058
  26. DIHYDRALAZINE SULFATE [Concomitant]
     Active Substance: DIHYDRALAZINE SULFATE
  27. DIMENHYDRINATE [Concomitant]
     Active Substance: DIMENHYDRINATE
  28. HYDROMORPHONE [Concomitant]
     Active Substance: HYDROMORPHONE
     Dosage: MAX. 6/DAY IF REQUIRED
  29. ESCITALOPRAM [Concomitant]
     Active Substance: ESCITALOPRAM OXALATE
  30. AMPICILLIN SODIUM\SULBACTAM SODIUM [Concomitant]
     Active Substance: AMPICILLIN SODIUM\SULBACTAM SODIUM
     Route: 042

REACTIONS (3)
  - Toxicity to various agents [Recovering/Resolving]
  - Disturbance in attention [Recovering/Resolving]
  - Seizure [Recovering/Resolving]

NARRATIVE: CASE EVENT DATE: 20240702
